FAERS Safety Report 7394287-3 (Version None)
Quarter: 2011Q1

REPORT INFORMATION
  Report Type: 
  Country: None (occurrence: None)
  Receive Date: 20110325
  Receipt Date: 20110310
  Transmission Date: 20110831
  Serious: Yes (Other)
  Sender: FDA-Public Use
  Company Number: AUR-APL-2011-00845

PATIENT
  Age: 20 Year
  Sex: Female

DRUGS (5)
  1. RISPERIDONE [Suspect]
     Indication: SCHIZOPHRENIA
     Dosage: 4MG-DAILY
     Dates: start: 20071101, end: 20080401
  2. TRIHEXYPHENIDYL [Concomitant]
  3. RISPERIDONE [Suspect]
     Indication: SCHIZOPHRENIA
     Dosage: 3MG-DAILY
     Dates: start: 20080401, end: 20080501
  4. METFORMIN [Concomitant]
  5. RISPERIDONE [Suspect]
     Indication: SCHIZOPHRENIA
     Dosage: 3.5 MG-DAILY
     Dates: start: 20080501

REACTIONS (9)
  - MENSTRUAL DISORDER [None]
  - HIRSUTISM [None]
  - BLOOD PROLACTIN INCREASED [None]
  - POLYCYSTIC OVARIES [None]
  - PSYCHOTIC DISORDER [None]
  - WEIGHT INCREASED [None]
  - THOUGHT BROADCASTING [None]
  - ACNE [None]
  - CONDITION AGGRAVATED [None]
